FAERS Safety Report 6174191-9 (Version None)
Quarter: 2009Q2

REPORT INFORMATION
  Report Type: 
  Country: None (occurrence: None)
  Receive Date: 20090430
  Receipt Date: 20080404
  Transmission Date: 20091009
  Serious: No
  Sender: FDA-Public Use
  Company Number: US-ASTRAZENECA-2008UW06818

PATIENT
  Age: 71 Year
  Sex: Male
  Weight: 58.1 kg

DRUGS (6)
  1. NEXIUM [Suspect]
     Indication: EROSIVE OESOPHAGITIS
     Route: 048
     Dates: start: 20070801
  2. NIASPAN [Concomitant]
  3. EVISTA [Concomitant]
  4. VITAMIN B-12 [Concomitant]
  5. VITAMIN B COMPLEX CAP [Concomitant]
  6. VITAMIN D [Concomitant]

REACTIONS (5)
  - COUGH [None]
  - DYSPHAGIA [None]
  - INSOMNIA [None]
  - MUSCLE SPASMS [None]
  - MUSCULOSKELETAL STIFFNESS [None]
